FAERS Safety Report 9454492 (Version 1)
Quarter: 2013Q3

REPORT INFORMATION
  Report Type: Spontaneous
  Country: US (occurrence: US)
  Receive Date: 20130812
  Receipt Date: 20130812
  Transmission Date: 20140515
  Serious: Yes (Other)
  Sender: FDA-Public Use
  Company Number: US-COVIDIEN/TYCO HEALTHCARE/MALLINCKRODT-T201303955

PATIENT
  Age: 50 Year
  Sex: Male

DRUGS (2)
  1. ROXICODONE [Suspect]
     Indication: PRODUCT USED FOR UNKNOWN INDICATION
     Dosage: 15 MG, Q 4 HRS
     Dates: start: 20100202
  2. ROXICODONE [Suspect]
     Dosage: 30 MG, UNK
     Dates: start: 20100217

REACTIONS (1)
  - Pancreatic carcinoma [Unknown]
